FAERS Safety Report 24007524 (Version 1)
Quarter: 2024Q2

REPORT INFORMATION
  Report Type: Spontaneous
  Country: GB (occurrence: GB)
  Receive Date: 20240625
  Receipt Date: 20240625
  Transmission Date: 20240716
  Serious: Yes (Life-Threatening, Other)
  Sender: FDA-Public Use
  Company Number: None

PATIENT
  Sex: Female
  Weight: 55 kg

DRUGS (2)
  1. CITALOPRAM [Suspect]
     Active Substance: CITALOPRAM\CITALOPRAM HYDROBROMIDE
     Indication: Depression
     Dosage: 10 MILLIGRAM, QD (ONCE PER DAY)
     Route: 065
     Dates: start: 202404
  2. FERROUS SULFATE [Concomitant]
     Active Substance: FERROUS SULFATE
     Indication: Serum ferritin decreased
     Dosage: UNK
     Route: 065
     Dates: start: 202404

REACTIONS (4)
  - Rhinorrhoea [Recovering/Resolving]
  - Suicidal ideation [Recovered/Resolved]
  - Anorgasmia [Not Recovered/Not Resolved]
  - Yawning [Unknown]

NARRATIVE: CASE EVENT DATE: 20240401
